FAERS Safety Report 24559809 (Version 1)
Quarter: 2024Q4

REPORT INFORMATION
  Report Type: Other
  Country: GB (occurrence: GB)
  Receive Date: 20241029
  Receipt Date: 20241029
  Transmission Date: 20250115
  Serious: Yes (Death, Hospitalization)
  Sender: ANI
  Company Number: GB-ANIPHARMA-012648

PATIENT
  Age: 74 Year
  Sex: Male

DRUGS (4)
  1. CLARITHROMYCIN [Suspect]
     Active Substance: CLARITHROMYCIN
     Indication: Atypical mycobacterial infection
  2. ISONIAZID [Concomitant]
     Active Substance: ISONIAZID
     Indication: Atypical mycobacterial infection
  3. RIFAMPIN [Concomitant]
     Active Substance: RIFAMPIN
     Indication: Atypical mycobacterial infection
  4. PYRIDOXINE [Concomitant]
     Active Substance: PYRIDOXINE
     Indication: Atypical mycobacterial infection

REACTIONS (2)
  - Drug intolerance [Fatal]
  - Treatment noncompliance [Fatal]
